FAERS Safety Report 18037204 (Version 3)
Quarter: 2020Q3

REPORT INFORMATION
  Report Type: Spontaneous
  Country: DE (occurrence: DE)
  Receive Date: 20200717
  Receipt Date: 20200916
  Transmission Date: 20201103
  Serious: Yes (Life-Threatening, Disabling)
  Sender: FDA-Public Use
  Company Number: DE-ROCHE-2642082

PATIENT
  Age: 54 Year
  Sex: Female

DRUGS (6)
  1. TAXOL [Concomitant]
     Active Substance: PACLITAXEL
     Dates: start: 201911, end: 20200507
  2. OCREVUS [Suspect]
     Active Substance: OCRELIZUMAB
     Route: 042
     Dates: start: 20190128, end: 20190128
  3. PERJETA [Concomitant]
     Active Substance: PERTUZUMAB
     Dates: start: 201911, end: 20200507
  4. OCREVUS [Suspect]
     Active Substance: OCRELIZUMAB
     Indication: MULTIPLE SCLEROSIS
     Route: 042
     Dates: start: 20190110, end: 20190110
  5. OCREVUS [Suspect]
     Active Substance: OCRELIZUMAB
     Route: 042
     Dates: start: 20190715, end: 20190715
  6. HERCEPTIN [Concomitant]
     Active Substance: TRASTUZUMAB
     Route: 065
     Dates: start: 201911, end: 20200507

REACTIONS (3)
  - Breast cancer [Not Recovered/Not Resolved]
  - Erythema [Unknown]
  - Fatigue [Unknown]

NARRATIVE: CASE EVENT DATE: 20191018
